FAERS Safety Report 24082708 (Version 5)
Quarter: 2025Q1

REPORT INFORMATION
  Report Type: Spontaneous
  Country: US (occurrence: US)
  Receive Date: 20240712
  Receipt Date: 20250114
  Transmission Date: 20250409
  Serious: Yes (Other)
  Sender: GILEAD
  Company Number: US-GILEAD-2024-0680333

PATIENT
  Age: 60 Year
  Sex: Male

DRUGS (2)
  1. VIREAD [Suspect]
     Active Substance: TENOFOVIR DISOPROXIL FUMARATE
     Indication: HIV infection
     Route: 048
     Dates: start: 2001, end: 2017
  2. VIREAD [Suspect]
     Active Substance: TENOFOVIR DISOPROXIL FUMARATE
     Route: 048
     Dates: start: 200111, end: 201907

REACTIONS (4)
  - Chronic kidney disease [Not Recovered/Not Resolved]
  - Fanconi syndrome [Not Recovered/Not Resolved]
  - Osteonecrosis [Recovered/Resolved]
  - Bone loss [Unknown]

NARRATIVE: CASE EVENT DATE: 20010101
